FAERS Safety Report 25974698 (Version 1)
Quarter: 2025Q4

REPORT INFORMATION
  Report Type: Spontaneous
  Country: EU (occurrence: EU)
  Receive Date: 20251029
  Receipt Date: 20251029
  Transmission Date: 20260118
  Serious: Yes (Hospitalization, Other)
  Sender: NOVARTIS
  Company Number: EU-002147023-NVSC2025RO162878

PATIENT
  Sex: Female

DRUGS (5)
  1. IMATINIB [Suspect]
     Active Substance: IMATINIB
     Indication: Chronic myeloid leukaemia
     Dosage: 600 MG, QD
     Route: 065
     Dates: start: 201905
  2. IMATINIB [Suspect]
     Active Substance: IMATINIB
     Dosage: 400 MG, QD
     Route: 065
     Dates: start: 20190709, end: 201907
  3. IMATINIB [Suspect]
     Active Substance: IMATINIB
     Dosage: 600 MG, QD
     Route: 065
     Dates: start: 201907, end: 201908
  4. NILOTINIB [Suspect]
     Active Substance: NILOTINIB
     Indication: Chronic myeloid leukaemia
     Dosage: 400 MG, BID
     Route: 065
     Dates: start: 20190805, end: 202504
  5. HYDREA [Concomitant]
     Active Substance: HYDROXYUREA
     Indication: Chronic myeloid leukaemia
     Dosage: 500 MG QD FOR 3  DAYS, THAN 1000  MG
     Route: 065
     Dates: start: 201905

REACTIONS (34)
  - Pneumonia [Unknown]
  - Pleural effusion [Recovered/Resolved]
  - Inflammation [Unknown]
  - General physical condition [Recovered/Resolved]
  - Communication disorder [Recovered/Resolved]
  - Infarction [Unknown]
  - Renal artery stenosis [Unknown]
  - Carotid artery stenosis [Unknown]
  - Carotid artery occlusion [Unknown]
  - Ascites [Unknown]
  - Congestive hepatopathy [Unknown]
  - Aortic valve incompetence [Unknown]
  - Tricuspid valve calcification [Unknown]
  - Mitral valve incompetence [Unknown]
  - Asthenia [Unknown]
  - Cough [Unknown]
  - Oedema peripheral [Unknown]
  - Blood urea increased [Unknown]
  - Cardiomegaly [Unknown]
  - Hypoalbuminaemia [Unknown]
  - Pleural effusion [Recovered/Resolved]
  - Nausea [Unknown]
  - Vomiting [Unknown]
  - Pleural thickening [Unknown]
  - Generalised oedema [Unknown]
  - Peripheral arterial occlusive disease [Unknown]
  - Malaise [Unknown]
  - Pleurisy [Unknown]
  - Aortic valve calcification [Unknown]
  - Pericardial disease [Unknown]
  - Hepatomegaly [Unknown]
  - Uterine leiomyoma [Unknown]
  - Lymphadenopathy [Unknown]
  - Pleomorphic adenoma [Unknown]

NARRATIVE: CASE EVENT DATE: 20190625
